FAERS Safety Report 7246881-8 (Version None)
Quarter: 2011Q1

REPORT INFORMATION
  Report Type: 
  Country: None (occurrence: None)
  Receive Date: 20110127
  Receipt Date: 20110113
  Transmission Date: 20110831
  Serious: Yes (Hospitalization)
  Sender: FDA-Public Use
  Company Number: FR-ELI_LILLY_AND_COMPANY-FR201008002268

PATIENT
  Age: 67 Year
  Sex: Female
  Weight: 65 kg

DRUGS (2)
  1. PIASCLEDINE                        /00809501/ [Concomitant]
     Dosage: 1 DOSAGE, DAILY (1/D)
     Route: 048
  2. FORTEO [Suspect]
     Indication: OSTEOPOROSIS
     Dosage: 20 UG, DAILY (1/D)
     Route: 058
     Dates: start: 20100323

REACTIONS (3)
  - JOINT INJURY [None]
  - OSTEOARTHRITIS [None]
  - NAUSEA [None]
